FAERS Safety Report 17815824 (Version 1)
Quarter: 2020Q2

REPORT INFORMATION
  Report Type: Spontaneous
  Country: CA (occurrence: CA)
  Receive Date: 20200522
  Receipt Date: 20200522
  Transmission Date: 20200714
  Serious: Yes (Death)
  Sender: FDA-Public Use
  Company Number: CA-ROCHE-2602539

PATIENT
  Age: 78 Year
  Sex: Female
  Weight: 78 kg

DRUGS (25)
  1. CICLESONIDE [Concomitant]
     Active Substance: CICLESONIDE
     Route: 065
  2. CYMBALTA [Concomitant]
     Active Substance: DULOXETINE HYDROCHLORIDE
     Route: 065
  3. GRAVOL [Concomitant]
     Active Substance: DIMENHYDRINATE
     Route: 065
  4. DIPHENHYDRAMINE HYDROCHLORIDE. [Concomitant]
     Active Substance: DIPHENHYDRAMINE HYDROCHLORIDE
     Route: 048
  5. FENTANYL. [Concomitant]
     Active Substance: FENTANYL
     Route: 065
  6. METHYLPREDNISOLONE. [Concomitant]
     Active Substance: METHYLPREDNISOLONE
     Route: 042
  7. SYMBICORT [Concomitant]
     Active Substance: BUDESONIDE\FORMOTEROL FUMARATE DIHYDRATE
  8. TYLENOL [Concomitant]
     Active Substance: ACETAMINOPHEN
  9. VITAMIN C [Concomitant]
     Active Substance: ASCORBIC ACID
  10. TYLENOL [Concomitant]
     Active Substance: ACETAMINOPHEN
  11. METFORMIN [Concomitant]
     Active Substance: METFORMIN HYDROCHLORIDE
  12. AVAPRO [Concomitant]
     Active Substance: IRBESARTAN
     Indication: BLOOD PRESSURE MEASUREMENT
  13. METOPROLOL. [Concomitant]
     Active Substance: METOPROLOL
     Route: 042
  14. PREDNISONE. [Concomitant]
     Active Substance: PREDNISONE
  15. METHOTREXATE. [Suspect]
     Active Substance: METHOTREXATE
     Indication: PRODUCT USED FOR UNKNOWN INDICATION
     Route: 065
  16. PANTOPRAZOLE [Concomitant]
     Active Substance: PANTOPRAZOLE
  17. MELATONIN [Concomitant]
     Active Substance: MELATONIN
     Route: 065
  18. DABIGATRAN ETEXILATE MESILATE [Concomitant]
     Active Substance: DABIGATRAN ETEXILATE MESYLATE
  19. ACETAMINOPHEN. [Concomitant]
     Active Substance: ACETAMINOPHEN
  20. RISEDRONATE SODIUM. [Concomitant]
     Active Substance: RISEDRONATE SODIUM
     Route: 065
  21. HYDROCORTISONE. [Concomitant]
     Active Substance: HYDROCORTISONE
     Route: 065
  22. PREVACID [Concomitant]
     Active Substance: LANSOPRAZOLE
  23. FOLIC ACID. [Concomitant]
     Active Substance: FOLIC ACID
     Route: 065
  24. LOSARTAN. [Concomitant]
     Active Substance: LOSARTAN
  25. RITUXIMAB. [Suspect]
     Active Substance: RITUXIMAB
     Indication: RHEUMATOID ARTHRITIS
     Route: 065

REACTIONS (18)
  - Abdominal pain [Fatal]
  - Dyspnoea [Fatal]
  - Infusion related reaction [Fatal]
  - Oxygen saturation decreased [Fatal]
  - Productive cough [Fatal]
  - Blood pressure systolic increased [Fatal]
  - Death [Fatal]
  - Bradycardia [Fatal]
  - Gastrooesophageal reflux disease [Fatal]
  - Humerus fracture [Fatal]
  - Pneumonia [Fatal]
  - Fall [Fatal]
  - Thrombosis [Fatal]
  - Atrial fibrillation [Fatal]
  - Blood pressure fluctuation [Fatal]
  - Gastritis [Fatal]
  - Osteoporosis [Fatal]
  - Abdominal discomfort [Fatal]
